FAERS Safety Report 4408693-X (Version None)
Quarter: 2004Q3

REPORT INFORMATION
  Report Type: 
  Country: None (occurrence: None)
  Receive Date: 20040723
  Receipt Date: 20040712
  Transmission Date: 20050211
  Serious: Yes (Death)
  Sender: FDA-Public Use
  Company Number: 2004042258

PATIENT
  Age: 22 Year
  Sex: Female

DRUGS (5)
  1. ZELDOX (CAPSULES) (ZIPRASIDONE) [Suspect]
     Indication: SCHIZOPHRENIA
     Dosage: 160 MG (2 IN 1 D), ORAL
     Route: 048
     Dates: start: 20040116, end: 20040601
  2. RISPERDAL [Suspect]
     Indication: SCHIZOPHRENIA
     Dates: start: 20040301, end: 20040301
  3. ARIPIPRAZOLE(ARIPIPRAZOLE) [Suspect]
     Indication: SCHIZOPHRENIA
     Dates: start: 20040301, end: 20040301
  4. PROMETHAZINE HCL [Concomitant]
  5. REBOXETINE (REBOXETINE) [Concomitant]

REACTIONS (5)
  - AKATHISIA [None]
  - COMPLETED SUICIDE [None]
  - DRUG INEFFECTIVE [None]
  - FOOD CRAVING [None]
  - WEIGHT INCREASED [None]
